FAERS Safety Report 4628095-0 (Version None)
Quarter: 2005Q2

REPORT INFORMATION
  Report Type: 
  Country: None (occurrence: None)
  Receive Date: 20050406
  Receipt Date: 20040706
  Transmission Date: 20051028
  Serious: Yes (Hospitalization)
  Sender: FDA-Public Use
  Company Number: US-GLAXOSMITHKLINE-A0537534A

PATIENT
  Sex: Male

DRUGS (3)
  1. VENTOLIN HFA [Suspect]
     Indication: ASTHMA
  2. PULMICORT [Suspect]
     Indication: ASTHMA
  3. IRON [Concomitant]

REACTIONS (22)
  - CARDIOVASCULAR DISORDER [None]
  - CEREBRAL PALSY [None]
  - CONVULSION [None]
  - DEAFNESS NEUROSENSORY [None]
  - DRUG EXPOSURE DURING PREGNANCY [None]
  - ENCEPHALOPATHY [None]
  - FOETAL DISTRESS SYNDROME [None]
  - HYPERTONIA [None]
  - HYPOGLYCAEMIA [None]
  - HYPOTENSION [None]
  - MECONIUM STAIN [None]
  - MICROCEPHALY [None]
  - MYOPIA [None]
  - NERVE INJURY [None]
  - OLIGURIA [None]
  - OXYGEN SATURATION DECREASED [None]
  - PULMONARY OEDEMA [None]
  - RESPIRATORY DEPRESSION [None]
  - SEPSIS [None]
  - STRABISMUS [None]
  - THROMBOCYTOPENIA [None]
  - VISUAL ACUITY REDUCED [None]
